FAERS Safety Report 6767162-2 (Version None)
Quarter: 2010Q2

REPORT INFORMATION
  Report Type: 
  Country: None (occurrence: None)
  Receive Date: 20100611
  Receipt Date: 20100611
  Transmission Date: 20101027
  Serious: No
  Sender: FDA-Public Use
  Company Number: None

PATIENT
  Age: 26 Year
  Sex: Female
  Weight: 68.0396 kg

DRUGS (1)
  1. ALLEGRA-D 180MG WATSON [Suspect]
     Indication: MULTIPLE ALLERGIES
     Dosage: 1 PER 12 HOURS PO
     Route: 048
     Dates: start: 20100301, end: 20100608

REACTIONS (1)
  - MEDICATION RESIDUE [None]
